FAERS Safety Report 5972574-0 (Version None)
Quarter: 2008Q4

REPORT INFORMATION
  Report Type: 
  Country: None (occurrence: None)
  Receive Date: 20081126
  Receipt Date: 20081126
  Transmission Date: 20090506
  Serious: Yes (Other)
  Sender: FDA-Public Use
  Company Number: None

PATIENT
  Sex: Male

DRUGS (1)
  1. REMBRANDT WHITENING PROF. CHAIRSIDE KIT (DISC.) [Suspect]
     Indication: TOOTH DISCOLOURATION
     Dosage: 060 ORAL
     Route: 048
     Dates: start: 20061201, end: 20061201

REACTIONS (2)
  - ANAPHYLACTIC SHOCK [None]
  - HYPERSENSITIVITY [None]
